FAERS Safety Report 13014715 (Version 2)
Quarter: 2016Q4

REPORT INFORMATION
  Report Type: Report from Study
  Country: US (occurrence: US)
  Receive Date: 20161209
  Receipt Date: 20161216
  Transmission Date: 20170207
  Serious: No
  Sender: FDA-Public Use
  Company Number: US-009507513-1612USA004875

PATIENT
  Age: 48 Year
  Sex: Male

DRUGS (4)
  1. PLAVIX [Concomitant]
     Active Substance: CLOPIDOGREL BISULFATE
  2. JANUMET [Suspect]
     Active Substance: METFORMIN HYDROCHLORIDE\SITAGLIPTIN PHOSPHATE
     Indication: HEPATOMEGALY
     Dosage: 50/1000 MG, ONCE DAILY
     Route: 048
     Dates: start: 20161119, end: 20161123
  3. NEURONTIN [Concomitant]
     Active Substance: GABAPENTIN
  4. JANUMET [Suspect]
     Active Substance: METFORMIN HYDROCHLORIDE\SITAGLIPTIN PHOSPHATE
     Indication: SPLENOMEGALY
     Dosage: 50/1000 MG, ONCE DAILY
     Route: 048
     Dates: start: 20161125, end: 201611

REACTIONS (4)
  - Drug dose omission [Unknown]
  - Dyspnoea [Recovered/Resolved]
  - Urticaria [Recovered/Resolved]
  - Pruritus [Recovered/Resolved]

NARRATIVE: CASE EVENT DATE: 201611
